FAERS Safety Report 20814541 (Version 1)
Quarter: 2022Q2

REPORT INFORMATION
  Report Type: Spontaneous
  Country: GB (occurrence: GB)
  Receive Date: 20220511
  Receipt Date: 20220511
  Transmission Date: 20220721
  Serious: Yes (Other)
  Sender: FDA-Public Use
  Company Number: None

PATIENT
  Age: 90 Year
  Sex: Female
  Weight: 77 kg

DRUGS (7)
  1. IRBESARTAN [Suspect]
     Active Substance: IRBESARTAN
     Dosage: 300 MILLIGRAM DAILY; 300MG
     Route: 065
     Dates: start: 20220425
  2. CARBOMER [Concomitant]
     Active Substance: CARBOMER
     Dosage: 4 DOSAGE FORMS DAILY; CARBOMER 980, UNIT DOSE :1 DF, FREQUENCY : 4 IN 1 DAY
     Dates: start: 20210625
  3. CETIRIZINE [Concomitant]
     Active Substance: CETIRIZINE HYDROCHLORIDE
     Indication: Seasonal allergy
     Dosage: 1 DOSAGE FORMS DAILY; 1DF
     Dates: start: 20210625
  4. CHOLECALCIFEROL [Concomitant]
     Active Substance: CHOLECALCIFEROL
     Indication: Vitamin D
     Dosage: 1 DOSAGE FORMS DAILY; UNIT DOSE :1 DF
     Dates: start: 20210625
  5. COZAAR [Concomitant]
     Active Substance: LOSARTAN POTASSIUM
     Dosage: 1 DOSAGE FORMS DAILY; UNIT DOSE :1 DF
     Dates: start: 20210625
  6. OMEPRAZOLE [Concomitant]
     Active Substance: OMEPRAZOLE
     Dosage: 2 DOSAGE FORMS DAILY; UNIT DOSE :1 DF, FREQUENCY : 2 IN 1 DAY
     Dates: start: 20210625
  7. ALBUTEROL [Concomitant]
     Active Substance: ALBUTEROL
     Dosage: 2DF
     Route: 055
     Dates: start: 20210625

REACTIONS (2)
  - Lip swelling [Recovered/Resolved]
  - Gingival pain [Unknown]

NARRATIVE: CASE EVENT DATE: 20220428
